FAERS Safety Report 6181111-X (Version None)
Quarter: 2009Q2

REPORT INFORMATION
  Report Type: 
  Country: None (occurrence: None)
  Receive Date: 20090504
  Receipt Date: 20090504
  Transmission Date: 20091009
  Serious: Yes (Other)
  Sender: FDA-Public Use
  Company Number: None

PATIENT
  Age: 59 Year
  Sex: Female
  Weight: 68.0396 kg

DRUGS (1)
  1. TOPIRAMATE [Suspect]
     Indication: TRIGEMINAL NEURALGIA
     Dosage: 100 MG TWICE DAILY PO
     Route: 048
     Dates: start: 20090414, end: 20090430

REACTIONS (6)
  - DECREASED ACTIVITY [None]
  - DRUG INEFFECTIVE [None]
  - PAIN [None]
  - PRODUCT QUALITY ISSUE [None]
  - PRODUCT SIZE ISSUE [None]
  - SURGICAL FAILURE [None]
